FAERS Safety Report 4873613-0 (Version None)
Quarter: 2005Q4

REPORT INFORMATION
  Report Type: 
  Country: None (occurrence: None)
  Receive Date: 20051201
  Receipt Date: 20050823
  Transmission Date: 20060501
  Serious: No
  Sender: FDA-Public Use
  Company Number: 2005PV001486

PATIENT
  Age: 53 Year
  Sex: Female

DRUGS (12)
  1. BYETTA [Suspect]
     Indication: DIABETES MELLITUS NON-INSULIN-DEPENDENT
     Dosage: 5 MCG;BID;SC
     Route: 058
     Dates: start: 20050727
  2. SYNTHROID [Concomitant]
  3. ASPIRIN [Concomitant]
  4. ALTACE [Concomitant]
  5. ZETIA [Concomitant]
  6. LIPITOR [Concomitant]
  7. VOLTAREN [Concomitant]
  8. FOLIC ACID [Concomitant]
  9. ESSENTIAL FATTY ACIDS [Concomitant]
  10. SELENIUM SULFIDE [Concomitant]
  11. GLUCOPHAGE [Concomitant]
  12. AVANDIA [Concomitant]

REACTIONS (4)
  - DYSGEUSIA [None]
  - INJECTION SITE ERYTHEMA [None]
  - INJECTION SITE PRURITUS [None]
  - INJECTION SITE URTICARIA [None]
